FAERS Safety Report 8965684 (Version 1)
Quarter: 2012Q4

REPORT INFORMATION
  Report Type: Spontaneous
  Country: US (occurrence: None)
  Receive Date: 20121212
  Receipt Date: 20121212
  Transmission Date: 20130627
  Serious: Yes (Life-Threatening, Other)
  Sender: FDA-Public Use
  Company Number: None

PATIENT
  Age: 44 Year
  Sex: Female
  Weight: 68.49 kg

DRUGS (3)
  1. PENTAZOCINE + NALOXONE [Suspect]
     Indication: CHRONIC NERVE PAIN
     Route: 048
     Dates: start: 20120402, end: 20121231
  2. PENTAZOCINE + NALOXONE [Suspect]
     Indication: POSTOPERATIVE PAIN
     Route: 048
     Dates: start: 20120402, end: 20121231
  3. LYRICA [Suspect]
     Route: 048
     Dates: start: 20070103, end: 20121231

REACTIONS (11)
  - Sleep talking [None]
  - Somnambulism [None]
  - Abnormal sleep-related event [None]
  - Fear [None]
  - Hallucination, visual [None]
  - Feeling abnormal [None]
  - Nightmare [None]
  - Middle insomnia [None]
  - Hyperhidrosis [None]
  - Crying [None]
  - Sleep attacks [None]
